FAERS Safety Report 5207747-8 (Version None)
Quarter: 2006Q4

REPORT INFORMATION
  Report Type: 
  Country: None (occurrence: None)
  Receive Date: 20061030
  Receipt Date: 20060925
  Transmission Date: 20070319
  Serious: Yes (Death)
  Sender: FDA-Public Use
  Company Number: 2006CT000678

PATIENT
  Age: 59 Year
  Sex: Male
  Weight: 67.1324 kg

DRUGS (1)
  1. VENTAVIS [Suspect]
     Indication: PULMONARY HYPERTENSION
     Dosage: 5 UG; 6XD; INH
     Route: 055
     Dates: start: 20060703, end: 20060718

REACTIONS (1)
  - PULMONARY HYPERTENSION [None]
